FAERS Safety Report 8034695-0 (Version None)
Quarter: 2012Q1

REPORT INFORMATION
  Report Type: 
  Country: None (occurrence: None)
  Receive Date: 20120111
  Receipt Date: 20120103
  Transmission Date: 20120608
  Serious: No
  Sender: FDA-Public Use
  Company Number: US-ACCORD-011293

PATIENT
  Age: 79 Year
  Sex: Female
  Weight: 136 kg

DRUGS (1)
  1. SIMVASTATIN [Suspect]
     Dosage: EXP DATE-MAY- 2013
     Route: 048
     Dates: start: 20110801, end: 20111101

REACTIONS (1)
  - DRUG INEFFECTIVE [None]
